FAERS Safety Report 4925373-2 (Version None)
Quarter: 2006Q1

REPORT INFORMATION
  Report Type: 
  Country: None (occurrence: None)
  Receive Date: 20060228
  Receipt Date: 20050208
  Transmission Date: 20060701
  Serious: Yes (Other)
  Sender: FDA-Public Use
  Company Number: US-GLAXOSMITHKLINE-A0544782A

PATIENT
  Age: 40 Year
  Sex: Female

DRUGS (2)
  1. LAMICTAL [Suspect]
     Indication: BIPOLAR DISORDER
     Dosage: 12.5MG PER DAY
     Route: 048
     Dates: start: 20041117, end: 20041201
  2. DEPAKOTE ER [Concomitant]
     Dosage: 1500MG PER DAY

REACTIONS (1)
  - ERYTHEMA MULTIFORME [None]
